FAERS Safety Report 8186708-3 (Version None)
Quarter: 2012Q1

REPORT INFORMATION
  Report Type: 
  Country: None (occurrence: None)
  Receive Date: 20120306
  Receipt Date: 20120227
  Transmission Date: 20120608
  Serious: Yes (Hospitalization)
  Sender: FDA-Public Use
  Company Number: FR-ASTELLAS-2011EU006172

PATIENT
  Sex: Female
  Weight: 60 kg

DRUGS (9)
  1. PROGRAF [Suspect]
     Indication: RENAL TRANSPLANT
     Dosage: 5 MG, UNKNOWN/D
     Route: 048
     Dates: start: 20051108
  2. FURADANTIN [Concomitant]
     Indication: PROPHYLAXIS URINARY TRACT INFECTION
     Dosage: UNK
     Route: 048
     Dates: start: 20060102
  3. MYCOPHENOLATE MOFETIL [Concomitant]
     Indication: RENAL TRANSPLANT
     Dosage: 500 MG, BID
     Route: 048
     Dates: start: 20051108
  4. NOROXIN [Concomitant]
     Indication: PROPHYLAXIS URINARY TRACT INFECTION
     Dosage: UNK
     Route: 048
     Dates: start: 20060102
  5. VITAMIN D [Concomitant]
     Indication: OSTEOPOROSIS PROPHYLAXIS
     Dosage: 1 DF, MONTHLY
     Route: 048
     Dates: start: 20100210
  6. TACROLIMUS [Suspect]
     Indication: RENAL TRANSPLANT
     Dosage: 5 MG, UNKNOWN/D
     Route: 048
     Dates: start: 20110901
  7. CALCIUM CARBONATE [Concomitant]
     Indication: HYPOKALAEMIA
     Dosage: 500 MG, UID/QD
     Route: 048
     Dates: start: 20051115
  8. CEFACET [Concomitant]
     Indication: PROPHYLAXIS URINARY TRACT INFECTION
     Dosage: UNK
     Route: 048
     Dates: start: 20060102
  9. SODIUM BICARBONATE [Concomitant]
     Indication: ACIDOSIS
     Dosage: 1 G, TID
     Route: 048
     Dates: start: 20051115

REACTIONS (3)
  - INFECTIOUS PERITONITIS [None]
  - AFFECTIVE DISORDER [None]
  - EMOTIONAL DISORDER [None]
